FAERS Safety Report 13062570 (Version 1)
Quarter: 2016Q4

REPORT INFORMATION
  Report Type: Report from Study
  Country: CA (occurrence: CA)
  Receive Date: 20161226
  Receipt Date: 20161226
  Transmission Date: 20170207
  Serious: Yes (Hospitalization, Other)
  Sender: FDA-Public Use
  Company Number: CA-GILEAD-2016-0216100

PATIENT
  Age: 75 Year
  Sex: Female
  Weight: 74.83 kg

DRUGS (11)
  1. LANTUS [Concomitant]
     Active Substance: INSULIN GLARGINE
  2. CANDESARTAN [Concomitant]
     Active Substance: CANDESARTAN
  3. SOFOSBUVIR [Suspect]
     Active Substance: SOFOSBUVIR
     Indication: CHRONIC HEPATITIS C
     Dosage: 400 MG, UNK
     Route: 048
     Dates: start: 20160427
  4. IBAVYR [Suspect]
     Active Substance: RIBAVIRIN
     Indication: CHRONIC HEPATITIS C
     Dosage: 1000 MG, UNK
     Route: 048
     Dates: start: 20160427, end: 201605
  5. IBAVYR [Suspect]
     Active Substance: RIBAVIRIN
     Dosage: 200 MG, TWICE WEEKLY
     Route: 048
     Dates: start: 201605
  6. EZETIMIBE. [Concomitant]
     Active Substance: EZETIMIBE
  7. ASPIRIN 81 [Concomitant]
     Active Substance: ASPIRIN
  8. BISOPROLOL [Concomitant]
     Active Substance: BISOPROLOL
  9. PAROXETINE. [Concomitant]
     Active Substance: PAROXETINE
  10. ATORVASTATIN [Concomitant]
     Active Substance: ATORVASTATIN
  11. NIFEDIPINE. [Concomitant]
     Active Substance: NIFEDIPINE

REACTIONS (4)
  - Fatigue [Unknown]
  - Transfusion [Unknown]
  - Haemoglobin decreased [Recovered/Resolved]
  - Hypersomnia [Unknown]

NARRATIVE: CASE EVENT DATE: 20160509
